FAERS Safety Report 4345938-9 (Version None)
Quarter: 2004Q2

REPORT INFORMATION
  Report Type: 
  Country: None (occurrence: None)
  Receive Date: 20040423
  Receipt Date: 20040423
  Transmission Date: 20050107
  Serious: Yes (Hospitalization, Other)
  Sender: FDA-Public Use
  Company Number: None

PATIENT
  Age: 28 Year
  Sex: Male
  Weight: 106.5953 kg

DRUGS (3)
  1. PAXIL [Suspect]
     Indication: ANXIETY
     Dates: start: 20011128, end: 20040323
  2. PAXIL [Suspect]
     Indication: DEPRESSION
     Dates: start: 20011128, end: 20040323
  3. PAROXETINE 10 MG APOTEX [Suspect]

REACTIONS (8)
  - ABDOMINAL PAIN [None]
  - AGGRESSION [None]
  - DECREASED INTEREST [None]
  - DISSOCIATION [None]
  - DRUG WITHDRAWAL SYNDROME [None]
  - INFLUENZA LIKE ILLNESS [None]
  - IRRITABILITY [None]
  - LETHARGY [None]
